FAERS Safety Report 4620865-8 (Version None)
Quarter: 2005Q1

REPORT INFORMATION
  Report Type: 
  Country: None (occurrence: None)
  Receive Date: 20050325
  Receipt Date: 20050316
  Transmission Date: 20050727
  Serious: Yes (Hospitalization, Other)
  Sender: FDA-Public Use
  Company Number: FRWYE510517MAR05

PATIENT
  Age: 36 Year
  Sex: Female

DRUGS (1)
  1. LEVONORGESTREL AND ETHINYL ESTRADIOL [Suspect]
     Indication: CONTRACEPTION
     Dosage: 1 TABLET 1X PER 1 DAY
     Route: 048
     Dates: start: 19851004, end: 20040311

REACTIONS (2)
  - CEREBRAL VENOUS THROMBOSIS [None]
  - EPILEPSY [None]
